FAERS Safety Report 15127839 (Version 1)
Quarter: 2018Q3

REPORT INFORMATION
  Report Type: Spontaneous
  Country: BR (occurrence: BR)
  Receive Date: 20180710
  Receipt Date: 20180710
  Transmission Date: 20181010
  Serious: Yes (Hospitalization, Other)
  Sender: FDA-Public Use
  Company Number: BR-GILEAD-2018-0345538

PATIENT
  Age: 57 Year
  Sex: Female
  Weight: 70 kg

DRUGS (4)
  1. DACLATASVIR. [Suspect]
     Active Substance: DACLATASVIR
     Indication: CHRONIC HEPATITIS C
     Dosage: 60 MG, UNK
     Route: 048
     Dates: start: 201611, end: 201701
  2. ALPRAZOLAM. [Concomitant]
     Active Substance: ALPRAZOLAM
     Dosage: UNK
     Route: 048
     Dates: start: 2014
  3. SOVALDI [Suspect]
     Active Substance: SOFOSBUVIR
     Indication: CHRONIC HEPATITIS C
     Dosage: 400 MG, UNK
     Route: 048
     Dates: start: 201611, end: 201701
  4. TRAMAL [Concomitant]
     Active Substance: TRAMADOL

REACTIONS (5)
  - Drug ineffective [Not Recovered/Not Resolved]
  - Sciatica [Unknown]
  - Genotype drug resistance test positive [Not Recovered/Not Resolved]
  - Weight decreased [Unknown]
  - Tendonitis [Unknown]

NARRATIVE: CASE EVENT DATE: 20170222
